FAERS Safety Report 24577870 (Version 1)
Quarter: 2024Q4

REPORT INFORMATION
  Report Type: Spontaneous
  Country: DE (occurrence: DE)
  Receive Date: 20241104
  Receipt Date: 20241104
  Transmission Date: 20250114
  Serious: Yes (Hospitalization, Other)
  Sender: NOVARTIS
  Company Number: DE-002147023-NVSC2023DE121577

PATIENT
  Sex: Female

DRUGS (7)
  1. SANDOSTATIN LAR DEPOT [Suspect]
     Active Substance: OCTREOTIDE ACETATE
     Indication: Product used for unknown indication
     Dosage: 30 MG, Q4W
     Route: 042
     Dates: start: 2018
  2. SANDOSTATIN LAR DEPOT [Suspect]
     Active Substance: OCTREOTIDE ACETATE
  3. SANDOSTATIN LAR DEPOT [Suspect]
     Active Substance: OCTREOTIDE ACETATE
  4. PANTOPRAZOLE [Suspect]
     Active Substance: PANTOPRAZOLE
     Indication: Product used for unknown indication
     Dosage: UNK
     Route: 065
  5. PANTOPRAZOLE [Suspect]
     Active Substance: PANTOPRAZOLE
     Dosage: UNK
     Route: 065
  6. ETORICOXIB [Suspect]
     Active Substance: ETORICOXIB
     Indication: Product used for unknown indication
     Dosage: 500 MG
     Route: 065
  7. HERBALS\TURMERIC [Concomitant]
     Active Substance: HERBALS\TURMERIC
     Indication: Product used for unknown indication
     Dosage: UNK
     Route: 065

REACTIONS (11)
  - Tumour marker increased [Unknown]
  - Neuroendocrine tumour [Unknown]
  - Haemorrhage [Unknown]
  - Herpes zoster [Unknown]
  - Blood chromogranin A increased [Unknown]
  - Device intolerance [Unknown]
  - Coronavirus infection [Not Recovered/Not Resolved]
  - Diarrhoea [Unknown]
  - Feeding disorder [Unknown]
  - Dehydration [Unknown]
  - Bile output abnormal [Unknown]

NARRATIVE: CASE EVENT DATE: 20220201
